FAERS Safety Report 17835532 (Version 3)
Quarter: 2021Q3

REPORT INFORMATION
  Report Type: Spontaneous
  Country: US (occurrence: US)
  Receive Date: 20200528
  Receipt Date: 20210908
  Transmission Date: 20211014
  Serious: Yes (Death, Disabling, Other)
  Sender: FDA-Public Use
  Company Number: US-SA-2020SA135569

PATIENT

DRUGS (1)
  1. ZANTAC [Suspect]
     Active Substance: RANITIDINE HYDROCHLORIDE
     Dosage: UNK
     Dates: start: 199504, end: 201804

REACTIONS (9)
  - Rectal cancer [Unknown]
  - Colorectal cancer [Fatal]
  - Injury [Unknown]
  - Anxiety [Unknown]
  - Exposure to toxic agent [Unknown]
  - Lung neoplasm malignant [Fatal]
  - Loss of personal independence in daily activities [Unknown]
  - Gastrointestinal carcinoma [Fatal]
  - Hepatic cancer [Fatal]

NARRATIVE: CASE EVENT DATE: 201804
